FAERS Safety Report 6050938-7 (Version None)
Quarter: 2009Q1

REPORT INFORMATION
  Report Type: 
  Country: None (occurrence: None)
  Receive Date: 20090126
  Receipt Date: 20080806
  Transmission Date: 20090719
  Serious: No
  Sender: FDA-Public Use
  Company Number: US-TYCO HEALTHCARE/MALLINCKRODT-T200801263

PATIENT

DRUGS (4)
  1. OPTIRAY 300 [Suspect]
     Indication: COMPUTERISED TOMOGRAM
     Dosage: 50 ML (CC), SINGLE
     Route: 042
     Dates: start: 20080805, end: 20080805
  2. PREVACID [Concomitant]
     Dosage: 30 MG, QD
     Route: 048
  3. ZANTAC                             /00550802/ [Concomitant]
     Dosage: 75 MG, BID
     Route: 048
  4. MULTI-VITAMINS [Concomitant]
     Dosage: UNK, QD
     Route: 048

REACTIONS (1)
  - INJECTION SITE PAIN [None]
